FAERS Safety Report 9670379 (Version 3)
Quarter: 2013Q4

REPORT INFORMATION
  Report Type: Report from Study
  Country: US (occurrence: US)
  Receive Date: 20131105
  Receipt Date: 20131215
  Transmission Date: 20140711
  Serious: Yes (Death)
  Sender: FDA-Public Use
  Company Number: US-ROCHE-1299879

PATIENT
  Sex: Female

DRUGS (3)
  1. AVASTIN [Suspect]
     Indication: BREAST CANCER FEMALE
     Route: 065
  2. AVASTIN [Suspect]
     Indication: BONE CANCER
  3. AVASTIN [Suspect]
     Indication: BONE CANCER

REACTIONS (1)
  - Breast cancer metastatic [Fatal]
